FAERS Safety Report 16774060 (Version 8)
Quarter: 2020Q4

REPORT INFORMATION
  Report Type: Report from Study
  Country: IT (occurrence: IT)
  Receive Date: 20190905
  Receipt Date: 20201104
  Transmission Date: 20210113
  Serious: No
  Sender: FDA-Public Use
  Company Number: IT-ROCHE-2391457

PATIENT
  Age: 70 Year
  Sex: Female
  Weight: 89 kg

DRUGS (12)
  1. VEMURAFENIB. [Suspect]
     Active Substance: VEMURAFENIB
     Indication: METASTATIC MALIGNANT MELANOMA
     Dosage: LAST DOSE ON 19/AUG/2019
     Route: 048
     Dates: start: 20190724, end: 20190803
  2. ROSUVASTATIN. [Concomitant]
     Active Substance: ROSUVASTATIN
     Indication: DYSLIPIDAEMIA
     Route: 048
     Dates: start: 2010
  3. COBIMETINIB. [Suspect]
     Active Substance: COBIMETINIB
     Indication: METASTATIC MALIGNANT MELANOMA
     Dosage: LAST DOSE ON 19/AUG/2019
     Route: 048
     Dates: start: 20190724, end: 20190803
  4. PREDNISONE. [Concomitant]
     Active Substance: PREDNISONE
     Dates: start: 20190815, end: 20190819
  5. SIMESTAT [Concomitant]
     Active Substance: ROSUVASTATIN CALCIUM
     Indication: DYSLIPIDAEMIA
     Dates: start: 20190710
  6. VEMURAFENIB. [Suspect]
     Active Substance: VEMURAFENIB
     Route: 048
     Dates: start: 20191014, end: 20191110
  7. GENTAMICIN SULPHATE [Concomitant]
     Active Substance: GENTAMICIN SULFATE
     Indication: RASH
     Dates: start: 20190805, end: 20190819
  8. PREDNISONE. [Concomitant]
     Active Substance: PREDNISONE
     Dates: start: 20190813, end: 20190814
  9. PREDNISONE. [Concomitant]
     Active Substance: PREDNISONE
     Indication: RASH
     Dates: start: 20190805, end: 20190812
  10. ALENDRONIC ACID;COLECALCIFEROL [Concomitant]
     Active Substance: ALENDRONATE SODIUM\CHOLECALCIFEROL
     Indication: OSTEOARTHRITIS
     Route: 048
     Dates: start: 2004
  11. VEMURAFENIB. [Suspect]
     Active Substance: VEMURAFENIB
     Route: 048
     Dates: start: 20191111
  12. COBIMETINIB. [Suspect]
     Active Substance: COBIMETINIB
     Route: 048
     Dates: start: 20191014, end: 20191103

REACTIONS (1)
  - Ejection fraction decreased [Recovered/Resolved]

NARRATIVE: CASE EVENT DATE: 20191105
